FAERS Safety Report 22253830 (Version 2)
Quarter: 2023Q2

REPORT INFORMATION
  Report Type: Spontaneous
  Country: TT (occurrence: TT)
  Receive Date: 20230426
  Receipt Date: 20230601
  Transmission Date: 20230721
  Serious: Yes (Other)
  Sender: FDA-Public Use
  Company Number: TT-GLAXOSMITHKLINE-TT2023AMR058075

PATIENT

DRUGS (1)
  1. FLUTICASONE FUROATE [Suspect]
     Active Substance: FLUTICASONE FUROATE
     Indication: Nasal congestion
     Dosage: 1 PUFF(S), EACH NOSTRIL
     Route: 055

REACTIONS (7)
  - Syncope [Unknown]
  - Pyrexia [Unknown]
  - Cough [Unknown]
  - Rhinorrhoea [Unknown]
  - Upper respiratory tract infection [Unknown]
  - Eye discharge [Recovered/Resolved]
  - Dizziness [Recovered/Resolved]

NARRATIVE: CASE EVENT DATE: 20230315
